FAERS Safety Report 5209775-5 (Version None)
Quarter: 2006Q4

REPORT INFORMATION
  Report Type: 
  Country: None (occurrence: None)
  Receive Date: 20061129
  Receipt Date: 20040727
  Transmission Date: 20070319
  Serious: Yes (Hospitalization)
  Sender: FDA-Public Use
  Company Number: 2004UW15773

PATIENT
  Age: 65 Year
  Sex: Male
  Weight: 115 kg

DRUGS (10)
  1. ZESTRIL [Suspect]
     Dates: start: 19980701, end: 20020401
  2. ZESTRIL [Suspect]
     Dates: start: 20020401
  3. ATORVASTATIN CALCIUM [Concomitant]
  4. INSULIN [Concomitant]
  5. GLIPIZIDE [Concomitant]
  6. DILTIAZEM HCL [Concomitant]
  7. FUROSEMIDE [Concomitant]
  8. METOPROLOL SUCCINATE [Concomitant]
  9. ASPIRIN [Concomitant]
  10. ISOSORBIDE MONONITRATE [Concomitant]

REACTIONS (1)
  - RENAL FAILURE ACUTE [None]
